FAERS Safety Report 11376248 (Version 4)
Quarter: 2015Q3

REPORT INFORMATION
  Report Type: Spontaneous
  Country: DE (occurrence: JP)
  Receive Date: 20150813
  Receipt Date: 20150911
  Transmission Date: 20151125
  Serious: Yes (Death)
  Sender: FDA-Public Use
  Company Number: JP-MERZ NORTH AMERICA, INC.-15MRZ-00417

PATIENT
  Age: 71 Year
  Sex: Female
  Weight: 54.5 kg

DRUGS (1)
  1. ASCLERA [Suspect]
     Active Substance: POLIDOCANOL
     Indication: VARICOSE VEIN
     Dosage: 2.5 TO 3.0ML (0.5ML/SITE, INJECTED 5 TO 6 TIMES)
     Route: 042
     Dates: start: 20140225, end: 20140225

REACTIONS (5)
  - Pulmonary embolism [Fatal]
  - Loss of consciousness [Fatal]
  - Dyspnoea [Fatal]
  - Nausea [Fatal]
  - Eye movement disorder [Fatal]

NARRATIVE: CASE EVENT DATE: 20140225
